FAERS Safety Report 7549806-0 (Version None)
Quarter: 2011Q2

REPORT INFORMATION
  Report Type: 
  Country: None (occurrence: None)
  Receive Date: 20110615
  Receipt Date: 20110404
  Transmission Date: 20111010
  Serious: Yes (Death, Other)
  Sender: FDA-Public Use
  Company Number: PHHY2011JP06905

PATIENT
  Sex: Male

DRUGS (9)
  1. AFINITOR [Suspect]
     Dosage: 5 MG, UNK
     Route: 048
     Dates: start: 20100827, end: 20101106
  2. ALMARL [Concomitant]
     Dosage: 20 MG, UNK
     Route: 048
  3. INTERFERON ALFA [Concomitant]
     Indication: METASTATIC RENAL CELL CARCINOMA
     Dates: start: 20091208, end: 20100202
  4. CODEINE SULFATE [Concomitant]
     Dosage: 20 MG, UNK
     Route: 048
  5. AFINITOR [Suspect]
     Indication: METASTATIC RENAL CELL CARCINOMA
     Dosage: 10 MG, UNK
     Route: 048
     Dates: start: 20100729, end: 20100806
  6. SUNITINIB MALATE [Concomitant]
     Indication: METASTATIC RENAL CELL CARCINOMA
     Dosage: 37.5 MG, UNK
     Route: 048
     Dates: start: 20100409, end: 20100709
  7. CANDESARTAN CILEXETIL [Concomitant]
     Dosage: 8 MG, UNK
     Route: 048
  8. CALBLOCK [Concomitant]
     Dosage: 8 MG, UNK
     Route: 048
  9. PREDNISOLONE [Concomitant]
     Dosage: 30 MG, UNK
     Route: 048

REACTIONS (5)
  - DECREASED APPETITE [None]
  - C-REACTIVE PROTEIN INCREASED [None]
  - HAEMOGLOBIN DECREASED [None]
  - NEOPLASM MALIGNANT [None]
  - BLOOD UREA INCREASED [None]
